FAERS Safety Report 26070089 (Version 1)
Quarter: 2025Q4

REPORT INFORMATION
  Report Type: Report from Study
  Country: PH (occurrence: PH)
  Receive Date: 20251120
  Receipt Date: 20251120
  Transmission Date: 20260117
  Serious: Yes (Death)
  Sender: OTSUKA
  Company Number: PH-MMM-Otsuka-01KBO4E3

PATIENT

DRUGS (1)
  1. TOLVAPTAN [Suspect]
     Active Substance: TOLVAPTAN
     Indication: Blood sodium decreased
     Dosage: 0.25 DF, QD (15 MG ONE-FOURTH TABLET EVERY MORNING)
     Dates: start: 202509, end: 20251024

REACTIONS (7)
  - Pneumonia [Fatal]
  - Mass [Fatal]
  - Pulmonary mass [Fatal]
  - Bacterial infection [Fatal]
  - Wrong technique in product usage process [Unknown]
  - Prescribed underdose [Unknown]
  - Product prescribing issue [Unknown]

NARRATIVE: CASE EVENT DATE: 20250901
